FAERS Safety Report 4895746-5 (Version None)
Quarter: 2006Q1

REPORT INFORMATION
  Report Type: 
  Country: None (occurrence: None)
  Receive Date: 20060124
  Receipt Date: 20060112
  Transmission Date: 20060701
  Serious: Yes (Hospitalization, Other)
  Sender: FDA-Public Use
  Company Number: 2006BH000698

PATIENT
  Age: 52 Year
  Sex: Female

DRUGS (2)
  1. IGIV GENERIC [Suspect]
     Indication: PETECHIAE
     Dosage: 70 GM; ONCE; IV
     Route: 042
     Dates: start: 19981101, end: 19981101
  2. PREDNISONE [Concomitant]

REACTIONS (10)
  - AXILLARY VEIN THROMBOSIS [None]
  - BILIRUBIN CONJUGATED INCREASED [None]
  - BLOOD BILIRUBIN INCREASED [None]
  - BLOOD LACTATE DEHYDROGENASE INCREASED [None]
  - DEEP VEIN THROMBOSIS [None]
  - MUSCULOSKELETAL STIFFNESS [None]
  - PLATELET COUNT DECREASED [None]
  - SUBCLAVIAN VEIN THROMBOSIS [None]
  - VENA CAVA THROMBOSIS [None]
  - VENOUS STENOSIS [None]
